APPROVED DRUG PRODUCT: CEFPROZIL
Active Ingredient: CEFPROZIL
Strength: 125MG/5ML
Dosage Form/Route: FOR SUSPENSION;ORAL
Application: A065284 | Product #002
Applicant: ORCHID HEALTHCARE
Approved: Dec 30, 2005 | RLD: No | RS: No | Type: DISCN